FAERS Safety Report 13342047 (Version 1)
Quarter: 2017Q1

REPORT INFORMATION
  Report Type: Spontaneous
  Country: None (occurrence: US)
  Receive Date: 20170316
  Receipt Date: 20170316
  Transmission Date: 20170428
  Serious: Yes (Other)
  Sender: FDA-Public Use
  Company Number: None

PATIENT
  Age: 77 Year
  Sex: Male
  Weight: 95.34 kg

DRUGS (8)
  1. COMBIVIR [Concomitant]
     Active Substance: LAMIVUDINE\ZIDOVUDINE
  2. ODEFSEY [Suspect]
     Active Substance: EMTRICITABINE\RILPIVIRINE HYDROCHLORIDE\TENOFOVIR ALAFENAMIDE FUMARATE
     Indication: HIV INFECTION
     Dosage: 200/25/25 1 PILL DAILY 1 TABLET DAILY MORNING BY MOUTH WITH FOOD
     Route: 048
     Dates: start: 20161201, end: 20170216
  3. VITAMINS [Concomitant]
     Active Substance: VITAMINS
  4. VIRAMUNE [Concomitant]
     Active Substance: NEVIRAPINE
  5. XALATAN [Concomitant]
     Active Substance: LATANOPROST
  6. ANTIHISTAMINE [Concomitant]
     Active Substance: UNSPECIFIED INGREDIENT
  7. ASPIRIN. [Concomitant]
     Active Substance: ASPIRIN
  8. FLO-MAX [Concomitant]

REACTIONS (5)
  - Rash [None]
  - Pruritus [None]
  - Peripheral swelling [None]
  - Dizziness [None]
  - Joint swelling [None]
